FAERS Safety Report 19904957 (Version 2)
Quarter: 2021Q4

REPORT INFORMATION
  Report Type: Spontaneous
  Country: US (occurrence: US)
  Receive Date: 20211001
  Receipt Date: 20211102
  Transmission Date: 20220303
  Serious: No
  Sender: FDA-Public Use
  Company Number: US-PFIZER INC-202101149066

PATIENT
  Age: 14 Year
  Sex: Female

DRUGS (1)
  1. GENOTROPIN [Suspect]
     Active Substance: SOMATROPIN
     Dosage: 1.2 MG
     Dates: start: 2018

REACTIONS (3)
  - Device use issue [Unknown]
  - Drug dose omission by device [Unknown]
  - Device information output issue [Unknown]
